FAERS Safety Report 5538390-9 (Version None)
Quarter: 2007Q4

REPORT INFORMATION
  Report Type: 
  Country: None (occurrence: None)
  Receive Date: 20071205
  Receipt Date: 20071128
  Transmission Date: 20080405
  Serious: Yes (Other)
  Sender: FDA-Public Use
  Company Number: 2007SP020893

PATIENT
  Age: 48 Year
  Sex: Female
  Weight: 129.7287 kg

DRUGS (10)
  1. PEG-INTRON [Suspect]
     Indication: HEPATITIS C
     Dosage: 150 MCG;QW;
     Dates: start: 20070910
  2. REBETOL [Suspect]
     Indication: HEPATITIS C
     Dosage: 400 MG;BID;PO
     Route: 048
     Dates: start: 20070910
  3. CARISOPRODOL [Concomitant]
  4. HYDROCODONE BITARTRATE + ACETAMINOPHEN [Concomitant]
  5. LIPITOR [Concomitant]
  6. ATIVAN [Concomitant]
  7. ZOLOFT [Concomitant]
  8. DIAZEPAM [Concomitant]
  9. TRIAMCINOLONE ACETONIDE [Concomitant]
  10. HYDROCHLOROTHIAZIDE [Concomitant]

REACTIONS (24)
  - ALOPECIA [None]
  - ARTHRALGIA [None]
  - CONDITION AGGRAVATED [None]
  - DECREASED APPETITE [None]
  - DEHYDRATION [None]
  - DIARRHOEA [None]
  - DIZZINESS [None]
  - HYPERGLYCAEMIA [None]
  - HYPERLIPIDAEMIA [None]
  - HYPERTENSION [None]
  - HYPOKALAEMIA [None]
  - INFLUENZA LIKE ILLNESS [None]
  - INSOMNIA [None]
  - LIVER FUNCTION TEST ABNORMAL [None]
  - MEMORY IMPAIRMENT [None]
  - MIGRAINE [None]
  - PAIN [None]
  - PANIC ATTACK [None]
  - POLYCYTHAEMIA [None]
  - PSORIASIS [None]
  - STRESS [None]
  - TINNITUS [None]
  - VISION BLURRED [None]
  - WEIGHT DECREASED [None]
